FAERS Safety Report 8898156 (Version 7)
Quarter: 2015Q1

REPORT INFORMATION
  Report Type: Spontaneous
  Country: US (occurrence: US)
  Receive Date: 20121109
  Receipt Date: 20150311
  Transmission Date: 20150721
  Serious: Yes (Hospitalization, Other)
  Sender: FDA-Public Use
  Company Number: US-BIOGENIDEC-2012BI049961

PATIENT
  Age: 44 Year
  Sex: Female
  Weight: 75 kg

DRUGS (17)
  1. CLONAZEPAM. [Concomitant]
     Active Substance: CLONAZEPAM
  2. NICODERM CQ [Concomitant]
     Active Substance: NICOTINE
  3. LEVOTHYROXINE [Concomitant]
     Active Substance: LEVOTHYROXINE
  4. PERCOCET [Concomitant]
     Active Substance: ACETAMINOPHEN\OXYCODONE HYDROCHLORIDE
  5. FLEXERIL [Concomitant]
     Active Substance: CYCLOBENZAPRINE HYDROCHLORIDE
  6. ENSURE [Concomitant]
     Active Substance: AMINO ACIDS\DEXTROSE\ELECTROLYTES NOS\SOYBEAN OIL\VITAMINS
  7. CREON [Concomitant]
     Active Substance: PANCRELIPASE AMYLASE\PANCRELIPASE LIPASE\PANCRELIPASE PROTEASE
  8. TESSALON [Concomitant]
     Active Substance: BENZONATATE
  9. MORPHINE [Concomitant]
     Active Substance: MORPHINE
  10. DOXEPIN [Concomitant]
     Active Substance: DOXEPIN
  11. PROMETHAZINE [Concomitant]
     Active Substance: PROMETHAZINE\PROMETHAZINE HYDROCHLORIDE
  12. AVONEX [Suspect]
     Active Substance: INTERFERON BETA-1A
     Indication: MULTIPLE SCLEROSIS
     Route: 030
     Dates: start: 20121028, end: 20130501
  13. SEPTRA DS [Concomitant]
     Active Substance: SULFAMETHOXAZOLE\TRIMETHOPRIM
  14. OMEPRAZOLE. [Concomitant]
     Active Substance: OMEPRAZOLE
  15. AMITIZA [Concomitant]
     Active Substance: LUBIPROSTONE
  16. AVONEX [Suspect]
     Active Substance: INTERFERON BETA-1A
     Indication: MULTIPLE SCLEROSIS
     Route: 030
  17. CYTOTEC [Concomitant]
     Active Substance: MISOPROSTOL

REACTIONS (9)
  - Lipase decreased [Unknown]
  - Influenza like illness [Not Recovered/Not Resolved]
  - Pancreatitis acute [Recovered/Resolved]
  - Bone pain [Not Recovered/Not Resolved]
  - Night sweats [Unknown]
  - Amylase decreased [Recovered/Resolved]
  - Blood glucose increased [Not Recovered/Not Resolved]
  - White blood cell count decreased [Unknown]
  - Pancreatitis chronic [Recovered/Resolved]

NARRATIVE: CASE EVENT DATE: 200912
